FAERS Safety Report 12906250 (Version 8)
Quarter: 2019Q2

REPORT INFORMATION
  Report Type: Report from Study
  Country: JP (occurrence: JP)
  Receive Date: 20161103
  Receipt Date: 20190621
  Transmission Date: 20190711
  Serious: Yes (Hospitalization, Other)
  Sender: FDA-Public Use
  Company Number: PHJP2016JP031264

PATIENT
  Age: 76 Year
  Sex: Male
  Weight: 65 kg

DRUGS (5)
  1. RINDERON [Concomitant]
     Indication: PUSTULAR PSORIASIS
     Dosage: 2 MG, UNK
     Route: 065
     Dates: start: 201107
  2. COSENTYX [Suspect]
     Active Substance: SECUKINUMAB
     Dosage: 300 MG, UNK
     Route: 058
     Dates: start: 20161020, end: 20161020
  3. TIGASON [Concomitant]
     Active Substance: ETRETINATE
     Indication: PUSTULAR PSORIASIS
     Dosage: 10 TO 20 MG, BID
     Route: 048
     Dates: start: 201304, end: 20161020
  4. COSENTYX [Suspect]
     Active Substance: SECUKINUMAB
     Indication: PUSTULAR PSORIASIS
     Dosage: 300 MG, UNK
     Route: 058
     Dates: start: 20161013
  5. RINDERON [Concomitant]
     Dosage: 1 MG, BID
     Route: 048
     Dates: start: 201304, end: 20161020

REACTIONS (8)
  - Muscular weakness [Unknown]
  - Pyrexia [Unknown]
  - C-reactive protein increased [Unknown]
  - Pneumonia staphylococcal [Recovered/Resolved]
  - Physical deconditioning [Unknown]
  - Nephrolithiasis [Unknown]
  - Renal cyst [Not Recovered/Not Resolved]
  - Chest discomfort [Unknown]

NARRATIVE: CASE EVENT DATE: 20161023
